FAERS Safety Report 5192564-8 (Version None)
Quarter: 2006Q4

REPORT INFORMATION
  Report Type: 
  Country: None (occurrence: None)
  Receive Date: 20061220
  Receipt Date: 20050916
  Transmission Date: 20070319
  Serious: Yes (Other)
  Sender: FDA-Public Use
  Company Number: 2006SS000018

PATIENT
  Age: 64 Year
  Sex: Female
  Weight: 64 kg

DRUGS (7)
  1. MYOBLOC [Suspect]
     Indication: TORTICOLLIS
     Dosage: SEE IMAGE
     Route: 030
     Dates: start: 20050504, end: 20050504
  2. MYOBLOC [Suspect]
     Indication: TORTICOLLIS
     Dosage: SEE IMAGE
     Route: 030
     Dates: start: 20031022
  3. LOPRESSOR [Concomitant]
  4. LASIX   /0032601/ [Concomitant]
  5. CALCIUM NASAL SPRAY [Concomitant]
  6. TRICOR [Concomitant]
  7. VITAMIN CAP [Concomitant]

REACTIONS (1)
  - CHOKING [None]
